FAERS Safety Report 5148188-1 (Version None)
Quarter: 2006Q4

REPORT INFORMATION
  Report Type: 
  Country: None (occurrence: None)
  Receive Date: 20061110
  Receipt Date: 20060502
  Transmission Date: 20070319
  Serious: Yes (Hospitalization, Other)
  Sender: FDA-Public Use
  Company Number: US-ELI_LILLY_AND_COMPANY-US200608005535

PATIENT
  Sex: Female
  Weight: 102.04 kg

DRUGS (1)
  1. ZYPREXA [Suspect]
     Indication: BIPOLAR I DISORDER
     Dates: start: 19970101, end: 20050101

REACTIONS (4)
  - HAEMORRHAGE [None]
  - HYPERGLYCAEMIA [None]
  - HYPERTENSION [None]
  - WEIGHT INCREASED [None]
